FAERS Safety Report 24178732 (Version 3)
Quarter: 2025Q1

REPORT INFORMATION
  Report Type: Spontaneous
  Country: FR (occurrence: FR)
  Receive Date: 20240806
  Receipt Date: 20250122
  Transmission Date: 20250408
  Serious: Yes (Other)
  Sender: MERCK KGAA
  Company Number: FR-Merck Healthcare KGaA-2023478580

PATIENT
  Age: 52 Year
  Sex: Female
  Weight: 73 kg

DRUGS (3)
  1. LEVOTHYROXINE [Suspect]
     Active Substance: LEVOTHYROXINE
     Indication: Post procedural hypothyroidism
  2. CALCIUM [Concomitant]
     Active Substance: CALCIUM
     Indication: Product used for unknown indication
  3. PHOSPHORUS [Concomitant]
     Active Substance: PHOSPHORUS
     Indication: Product used for unknown indication

REACTIONS (48)
  - Thyroid neoplasm [Unknown]
  - Benign neoplasm of thyroid gland [Unknown]
  - Productive cough [Unknown]
  - Weight decreased [Unknown]
  - Quality of life decreased [Unknown]
  - Feeling cold [Unknown]
  - Anxiety disorder [Unknown]
  - Weight increased [Unknown]
  - Asthenia [Unknown]
  - Brain fog [Recovering/Resolving]
  - Odynophagia [Recovering/Resolving]
  - Scar [Not Recovered/Not Resolved]
  - Dysphonia [Recovering/Resolving]
  - Secretion discharge [Not Recovered/Not Resolved]
  - Fibromyalgia [Unknown]
  - Eating disorder [Not Recovered/Not Resolved]
  - Mastication disorder [Not Recovered/Not Resolved]
  - Dysphagia [Unknown]
  - Fatigue [Recovering/Resolving]
  - Alopecia [Unknown]
  - Hypotension [Recovered/Resolved]
  - Heart rate decreased [Not Recovered/Not Resolved]
  - Muscle tightness [Not Recovered/Not Resolved]
  - Mass [Unknown]
  - Head discomfort [Unknown]
  - Dyspnoea [Unknown]
  - Malaise [Unknown]
  - Scar pain [Unknown]
  - Apathy [Unknown]
  - Attention deficit hyperactivity disorder [Unknown]
  - Dizziness [Unknown]
  - Seborrhoeic dermatitis [Unknown]
  - Perioral dermatitis [Unknown]
  - Vulvovaginal dryness [Recovered/Resolved]
  - Blood thyroid stimulating hormone increased [Unknown]
  - Nasopharyngitis [Not Recovered/Not Resolved]
  - Constipation [Unknown]
  - Pruritus [Not Recovered/Not Resolved]
  - Nervous system disorder [Unknown]
  - Pain [Unknown]
  - Skin disorder [Unknown]
  - Insomnia [Unknown]
  - Hyperthyroidism [Unknown]
  - Blood thyroid stimulating hormone decreased [Not Recovered/Not Resolved]
  - Heart rate increased [Unknown]
  - Blood pressure increased [Recovered/Resolved]
  - Adverse reaction [Unknown]
  - Post procedural complication [Unknown]
